FAERS Safety Report 16024040 (Version 2)
Quarter: 2019Q2

REPORT INFORMATION
  Report Type: Spontaneous
  Country: US (occurrence: US)
  Receive Date: 20190301
  Receipt Date: 20190405
  Transmission Date: 20190711
  Serious: Yes (Other)
  Sender: FDA-Public Use
  Company Number: US-UNITED THERAPEUTICS-UNT-2019-003253

PATIENT
  Age: 74 Year
  Sex: Female

DRUGS (2)
  1. REMODULIN [Suspect]
     Active Substance: TREPROSTINIL
     Dosage: UNK UNK, CONTINUING
     Route: 058
     Dates: start: 20160813
  2. REMODULIN [Suspect]
     Active Substance: TREPROSTINIL
     Indication: PULMONARY ARTERIAL HYPERTENSION
     Dosage: 0.030 ?G/KG, CONTINUING
     Route: 058
     Dates: start: 20160711

REACTIONS (6)
  - Infusion site swelling [Unknown]
  - Hypersensitivity [Unknown]
  - Infusion site erythema [Unknown]
  - Infusion site pain [Unknown]
  - Dyspnoea [Unknown]
  - Dermatitis [Unknown]

NARRATIVE: CASE EVENT DATE: 201903
